FAERS Safety Report 22658403 (Version 1)
Quarter: 2023Q2

REPORT INFORMATION
  Report Type: Spontaneous
  Country: US (occurrence: None)
  Receive Date: 20230629
  Receipt Date: 20230629
  Transmission Date: 20230722
  Serious: No
  Sender: FDA-Public Use
  Company Number: None

PATIENT
  Sex: Female

DRUGS (1)
  1. CAPECITABINE [Suspect]
     Active Substance: CAPECITABINE
     Indication: Breast cancer female
     Dosage: OTHER QUANTITY : 4T AM + 3T PM ;?OTHER FREQUENCY : 7 DAYS 7 DAYS OFF;?
     Route: 048
     Dates: start: 202212

REACTIONS (2)
  - Drug ineffective [None]
  - Therapy interrupted [None]
